FAERS Safety Report 6964024-2 (Version None)
Quarter: 2010Q3

REPORT INFORMATION
  Report Type: 
  Country: None (occurrence: None)
  Receive Date: 20100902
  Receipt Date: 20100902
  Transmission Date: 20110219
  Serious: Yes (Death)
  Sender: FDA-Public Use
  Company Number: None

PATIENT
  Age: 68 Year
  Sex: Male

DRUGS (6)
  1. REVLIMID [Suspect]
     Indication: MYELODYSPLASTIC SYNDROME
     Dosage: 15MG EVERY 3 DAYS ORALLY
     Route: 048
  2. LORAZEPAM [Concomitant]
  3. METHADONE [Concomitant]
  4. LOMOTIL [Concomitant]
  5. INDOCIN [Concomitant]
  6. OMEPAZOLE [Concomitant]

REACTIONS (1)
  - THERAPY CESSATION [None]
